FAERS Safety Report 23035700 (Version 7)
Quarter: 2024Q2

REPORT INFORMATION
  Report Type: Spontaneous
  Country: US (occurrence: US)
  Receive Date: 20231006
  Receipt Date: 20240409
  Transmission Date: 20240716
  Serious: Yes (Other)
  Sender: FDA-Public Use
  Company Number: US-BRISTOL-MYERS SQUIBB COMPANY-2023-139885

PATIENT
  Age: 72 Year
  Sex: Female

DRUGS (2)
  1. LENALIDOMIDE [Suspect]
     Active Substance: LENALIDOMIDE
     Indication: End stage renal disease
     Dosage: FREQUENCY- TAKE 1 CAPSULE BY MOUTH EVERY DAY FOR 21 DAYS ON THEN 7 DAYS OFF OF A 28-DAY CYCLE.
     Route: 048
     Dates: start: 20230530
  2. LENALIDOMIDE [Suspect]
     Active Substance: LENALIDOMIDE
     Dosage: FREQUENCY- TAKE 1 CAPSULE BY MOUTH EVERY DAY FOR 21 DAYS ON THEN 7 DAYS OFF OF A 28-DAY CYCLE.
     Route: 048

REACTIONS (13)
  - White blood cell count decreased [Recovered/Resolved]
  - Cataract [Not Recovered/Not Resolved]
  - Macular degeneration [Unknown]
  - Peripheral swelling [Recovering/Resolving]
  - Muscle spasms [Unknown]
  - Musculoskeletal stiffness [Unknown]
  - Off label use [Unknown]
  - Sinus disorder [Unknown]
  - Arthritis [Unknown]
  - Pain [Unknown]
  - Fatigue [Recovering/Resolving]
  - Somnolence [Recovering/Resolving]
  - Intentional dose omission [Unknown]

NARRATIVE: CASE EVENT DATE: 20231117
